FAERS Safety Report 6008553-7 (Version None)
Quarter: 2008Q4

REPORT INFORMATION
  Report Type: 
  Country: None (occurrence: None)
  Receive Date: 20081217
  Receipt Date: 20081209
  Transmission Date: 20090506
  Serious: Yes (Disabling)
  Sender: FDA-Public Use
  Company Number: BR-B.I. PHARMACEUTICALS,INC./RIDGEFIELD-2008-BR-00409BR

PATIENT
  Age: 70 Year
  Sex: Male

DRUGS (2)
  1. SIFROL [Suspect]
     Indication: PARKINSON'S DISEASE
     Dosage: 1MG
     Route: 048
     Dates: start: 20081208, end: 20081208
  2. DICETEL [Concomitant]

REACTIONS (10)
  - ABNORMAL FAECES [None]
  - DIZZINESS [None]
  - HEADACHE [None]
  - MOVEMENT DISORDER [None]
  - MUSCLE SPASMS [None]
  - NAUSEA [None]
  - PAIN IN EXTREMITY [None]
  - SOMNOLENCE [None]
  - VISUAL ACUITY REDUCED [None]
  - VOMITING [None]
